FAERS Safety Report 10459651 (Version 2)
Quarter: 2014Q4

REPORT INFORMATION
  Report Type: Spontaneous
  Country: US (occurrence: US)
  Receive Date: 20140917
  Receipt Date: 20141005
  Transmission Date: 20150528
  Serious: Yes (Other)
  Sender: FDA-Public Use
  Company Number: US-BRISTOL-MYERS SQUIBB COMPANY-21398839

PATIENT
  Age: 75 Year
  Sex: Female
  Weight: 63.94 kg

DRUGS (20)
  1. COREG [Concomitant]
     Active Substance: CARVEDILOL
  2. SPIRONOLACTONE. [Concomitant]
     Active Substance: SPIRONOLACTONE
  3. BIOTIN [Concomitant]
     Active Substance: BIOTIN
  4. BYETTA [Suspect]
     Active Substance: EXENATIDE
     Dates: start: 20070503, end: 201001
  5. NORCO [Concomitant]
     Active Substance: ACETAMINOPHEN\HYDROCODONE BITARTRATE
     Indication: PAIN
  6. MULTIVITAMIN [Concomitant]
     Active Substance: VITAMINS
  7. NOVOLOG [Concomitant]
     Active Substance: INSULIN ASPART
  8. ZOFRAN [Concomitant]
     Active Substance: ONDANSETRON HYDROCHLORIDE
     Indication: VOMITING
  9. LOMOTIL [Concomitant]
     Active Substance: ATROPINE SULFATE\DIPHENOXYLATE HYDROCHLORIDE
     Indication: DIARRHOEA
  10. LIPITOR [Concomitant]
     Active Substance: ATORVASTATIN CALCIUM
  11. LASIX [Concomitant]
     Active Substance: FUROSEMIDE
  12. LOSARTAN [Concomitant]
     Active Substance: LOSARTAN
  13. POTASSIUM [Concomitant]
     Active Substance: POTASSIUM
  14. MIRALAX [Concomitant]
     Active Substance: POLYETHYLENE GLYCOL 3350
     Indication: CONSTIPATION
  15. NORVASC [Concomitant]
     Active Substance: AMLODIPINE BESYLATE
  16. CALCIUM + VITAMIN D [Concomitant]
     Active Substance: CALCIUM\VITAMIN D
  17. POTASSIUM CHLORIDE. [Concomitant]
     Active Substance: POTASSIUM CHLORIDE
  18. LOVENOX [Concomitant]
     Active Substance: ENOXAPARIN SODIUM
  19. VITAMIN D3 [Concomitant]
     Active Substance: CHOLECALCIFEROL
  20. ZOFRAN [Concomitant]
     Active Substance: ONDANSETRON HYDROCHLORIDE
     Indication: NAUSEA

REACTIONS (1)
  - Pancreatic carcinoma metastatic [Unknown]

NARRATIVE: CASE EVENT DATE: 20130806
